FAERS Safety Report 13644699 (Version 1)
Quarter: 2017Q2

REPORT INFORMATION
  Report Type: Spontaneous
  Country: US (occurrence: US)
  Receive Date: 20170612
  Receipt Date: 20170612
  Transmission Date: 20170830
  Serious: No
  Sender: FDA-Public Use
  Company Number: US-ROCHE-1483594

PATIENT
  Age: 50 Year
  Sex: Female

DRUGS (3)
  1. XELODA [Suspect]
     Active Substance: CAPECITABINE
     Indication: BREAST CANCER
     Dosage: 2 TABLETS?14 DAYS EVERY 21 DAYS
     Route: 048
     Dates: start: 20130801
  2. ARIMIDEX [Concomitant]
     Active Substance: ANASTROZOLE
  3. LEVAQUIN [Concomitant]
     Active Substance: LEVOFLOXACIN
     Indication: BREAST CANCER
     Route: 065

REACTIONS (2)
  - Thrombosis [Unknown]
  - Arthralgia [Not Recovered/Not Resolved]
